FAERS Safety Report 6570584-6 (Version None)
Quarter: 2010Q1

REPORT INFORMATION
  Report Type: 
  Country: None (occurrence: None)
  Receive Date: 20100204
  Receipt Date: 20100122
  Transmission Date: 20100710
  Serious: Yes (Hospitalization, Other)
  Sender: FDA-Public Use
  Company Number: US-ELI_LILLY_AND_COMPANY-US200912005184

PATIENT
  Sex: Female
  Weight: 73.923 kg

DRUGS (8)
  1. CYMBALTA [Suspect]
     Indication: DEPRESSION
     Dosage: 60 MG, 2/D
     Dates: start: 20070501
  2. ZYPREXA [Suspect]
     Indication: BIPOLAR DISORDER
     Dosage: 5 MG, 2/D
     Dates: end: 20091101
  3. ZYPREXA [Suspect]
     Dosage: 5 MG, 2/D
     Dates: start: 20091101, end: 20090101
  4. RITALIN [Concomitant]
     Dosage: 20 MG, 3/D
  5. CLONAZEPAM [Concomitant]
     Dosage: 1 MG, 3/D
  6. PHENERGAN HCL [Concomitant]
     Dosage: 25 MG, 3/D
  7. PERCOCET [Concomitant]
     Dosage: 10 MG, 3/D
  8. AMBIEN [Concomitant]
     Dosage: 10 MG, EACH EVENING

REACTIONS (6)
  - AMNESIA [None]
  - CHEST PAIN [None]
  - DRUG INEFFECTIVE [None]
  - DRUG WITHDRAWAL SYNDROME [None]
  - INTENTIONAL DRUG MISUSE [None]
  - NEPHROLITHIASIS [None]
